FAERS Safety Report 7252812-7 (Version None)
Quarter: 2011Q1

REPORT INFORMATION
  Report Type: 
  Country: None (occurrence: None)
  Receive Date: 20110129
  Receipt Date: 20100119
  Transmission Date: 20110831
  Serious: No
  Sender: FDA-Public Use
  Company Number: US-ABBOTT-10P-163-0620974-00

PATIENT
  Sex: Female
  Weight: 81.72 kg

DRUGS (3)
  1. ADVAIR [Concomitant]
     Indication: ASTHMA
  2. PROAIR HFA [Concomitant]
     Indication: ASTHMA
  3. HUMIRA [Suspect]
     Indication: PSORIASIS
     Route: 058
     Dates: start: 20090201

REACTIONS (1)
  - SINUSITIS [None]
